FAERS Safety Report 4852478-7 (Version None)
Quarter: 2005Q4

REPORT INFORMATION
  Report Type: 
  Country: None (occurrence: None)
  Receive Date: 20051213
  Receipt Date: 20051208
  Transmission Date: 20060501
  Serious: Yes (Hospitalization)
  Sender: FDA-Public Use
  Company Number: FR-BRISTOL-MYERS SQUIBB COMPANY-13208574

PATIENT
  Age: 79 Year
  Sex: Female

DRUGS (4)
  1. SINEMET [Suspect]
     Indication: PARKINSON'S DISEASE
     Route: 048
     Dates: start: 20030704, end: 20030930
  2. SERESTA [Suspect]
     Indication: DEPRESSION
  3. CITALOPRAM HYDROBROMIDE [Concomitant]
     Indication: PARKINSON'S DISEASE
     Route: 048
     Dates: start: 20030704, end: 20030930
  4. DI-ANTALVIC [Concomitant]
     Indication: BONE PAIN
     Route: 048

REACTIONS (3)
  - CONFUSIONAL STATE [None]
  - DISORIENTATION [None]
  - SPEECH DISORDER [None]
